FAERS Safety Report 5138395-6 (Version None)
Quarter: 2006Q4

REPORT INFORMATION
  Report Type: 
  Country: None (occurrence: None)
  Receive Date: 20061024
  Receipt Date: 20061018
  Transmission Date: 20070319
  Serious: Yes (Death)
  Sender: FDA-Public Use
  Company Number: 163-20785-06091182

PATIENT
  Age: 54 Year
  Sex: Male

DRUGS (8)
  1. THALOMID [Suspect]
     Indication: MULTIPLE MYELOMA
     Dosage: 200 MG , 1 IN 1 D, ORAL
     Route: 048
     Dates: start: 20060501, end: 20060816
  2. DEXAMETHASONE TAB [Suspect]
     Indication: MULTIPLE MYELOMA
     Dosage: 4 MG DAILY ORAL
     Route: 048
  3. GLUCOSAMINE [Concomitant]
  4. OXYCODONE HCL [Concomitant]
  5. ALEVE [Concomitant]
  6. ZOMETA [Concomitant]
  7. TOPROL-XL [Concomitant]
  8. OXYCONTIN [Concomitant]

REACTIONS (2)
  - PULMONARY EMBOLISM [None]
  - SUDDEN CARDIAC DEATH [None]
